FAERS Safety Report 7261719-0 (Version None)
Quarter: 2011Q1

REPORT INFORMATION
  Report Type: 
  Country: None (occurrence: None)
  Receive Date: 20110130
  Receipt Date: 20101025
  Transmission Date: 20110831
  Serious: No
  Sender: FDA-Public Use
  Company Number: US-ABBOTT-10P-163-0680966-00

PATIENT
  Sex: Female
  Weight: 68.1 kg

DRUGS (4)
  1. HUMIRA [Suspect]
     Indication: CROHN'S DISEASE
     Dates: start: 20100701, end: 20101001
  2. VALACYCLOVIR [Concomitant]
     Indication: GENITAL HERPES
  3. ASACOL [Concomitant]
     Indication: CROHN'S DISEASE
     Dates: start: 20101015
  4. IBUPROFEN [Concomitant]
     Indication: TOOTHACHE

REACTIONS (2)
  - VOMITING [None]
  - DRUG DOSE OMISSION [None]
